FAERS Safety Report 20403480 (Version 1)
Quarter: 2022Q1

REPORT INFORMATION
  Report Type: Spontaneous
  Country: US (occurrence: US)
  Receive Date: 20220131
  Receipt Date: 20220131
  Transmission Date: 20220424
  Serious: No
  Sender: FDA-Public Use
  Company Number: US-HETERO-HET2022US00209

PATIENT

DRUGS (1)
  1. RITONAVIR [Suspect]
     Active Substance: RITONAVIR
     Indication: Product used for unknown indication
     Dosage: TOOK 2 DOSES
     Route: 065
     Dates: start: 20220123

REACTIONS (5)
  - Product taste abnormal [Unknown]
  - Nausea [Unknown]
  - Blood pressure systolic increased [Unknown]
  - Abdominal discomfort [Unknown]
  - Dysgeusia [Unknown]

NARRATIVE: CASE EVENT DATE: 20220101
